FAERS Safety Report 7223036-4 (Version None)
Quarter: 2011Q1

REPORT INFORMATION
  Report Type: 
  Country: None (occurrence: None)
  Receive Date: 20110112
  Receipt Date: 20110103
  Transmission Date: 20110831
  Serious: Yes (Death, Life-Threatening, Hospitalization)
  Sender: FDA-Public Use
  Company Number: US-ABBOTT-10P-163-0687169-00

PATIENT
  Sex: Male

DRUGS (10)
  1. ZEBETA [Concomitant]
     Indication: HYPERTENSION
     Dates: start: 20000101
  2. HUMIRA [Suspect]
     Route: 058
     Dates: end: 20101101
  3. LEVOTHYROXINE [Concomitant]
     Indication: HYPOTHYROIDISM
     Dates: start: 20000101
  4. HUMIRA [Suspect]
     Indication: PSORIASIS
     Route: 058
     Dates: start: 20100701
  5. PREDNISONE [Concomitant]
     Indication: ARTHRITIS
     Dates: start: 20060101
  6. METOPROLOL [Concomitant]
     Indication: HYPERTENSION
  7. GALANTAMINE HYDROBROMIDE [Concomitant]
     Indication: DEMENTIA
     Dates: start: 20030101
  8. SIMVASTATIN [Concomitant]
     Indication: HYPERCHOLESTEROLAEMIA
     Dates: start: 20000101
  9. WARFARIN [Concomitant]
     Indication: CEREBROVASCULAR ACCIDENT PROPHYLAXIS
     Dates: start: 20030101
  10. COUMADIN [Concomitant]
     Indication: ANTICOAGULANT THERAPY
     Dates: start: 20100101, end: 20101121

REACTIONS (2)
  - HEPATIC FAILURE [None]
  - DIVERTICULITIS [None]
